FAERS Safety Report 18120722 (Version 1)
Quarter: 2020Q3

REPORT INFORMATION
  Report Type: Spontaneous
  Country: GB (occurrence: GB)
  Receive Date: 20200806
  Receipt Date: 20200806
  Transmission Date: 20201103
  Serious: Yes (Other)
  Sender: FDA-Public Use
  Company Number: GB-PERRIGO-20GB010567

PATIENT
  Age: 61 Year
  Sex: Female
  Weight: 66.67 kg

DRUGS (5)
  1. NYTOL ORIGINAL 25MG TABLETS [Suspect]
     Active Substance: DIPHENHYDRAMINE HYDROCHLORIDE
     Indication: INSOMNIA
     Dosage: 25MG?50 MGS
     Route: 048
     Dates: start: 20200510
  2. DILTIAZEM. [Concomitant]
     Active Substance: DILTIAZEM
  3. CANDESARTAN. [Concomitant]
     Active Substance: CANDESARTAN
  4. THYROXINE [Concomitant]
     Active Substance: LEVOTHYROXINE
  5. INDIVINA [Concomitant]
     Active Substance: ESTRADIOL VALERATE\MEDROXYPROGESTERONE ACETATE

REACTIONS (5)
  - Chest pain [Unknown]
  - Blood pressure increased [Unknown]
  - Extrasystoles [Unknown]
  - Arrhythmia [Unknown]
  - Heart rate increased [Unknown]

NARRATIVE: CASE EVENT DATE: 20200607
